APPROVED DRUG PRODUCT: TRAVASOL 4.25% SULFITE FREE W/ ELECTROLYTES IN DEXTROSE 20% IN PLASTIC CONTAINER
Active Ingredient: AMINO ACIDS; DEXTROSE; MAGNESIUM CHLORIDE; POTASSIUM PHOSPHATE, DIBASIC; SODIUM ACETATE; SODIUM CHLORIDE
Strength: 4.25%;20GM/100ML;51MG/100ML;261MG/100ML;297MG/100ML;77MG/100ML
Dosage Form/Route: INJECTABLE;INJECTION
Application: N020147 | Product #009
Applicant: BAXTER HEALTHCARE CORP
Approved: Oct 23, 1995 | RLD: No | RS: No | Type: DISCN